FAERS Safety Report 15130628 (Version 2)
Quarter: 2018Q3

REPORT INFORMATION
  Report Type: Spontaneous
  Country: FR (occurrence: FR)
  Receive Date: 20180711
  Receipt Date: 20180807
  Transmission Date: 20181010
  Serious: Yes (Hospitalization, Other)
  Sender: FDA-Public Use
  Company Number: FR-PFIZER INC-2018273483

PATIENT
  Age: 60 Year
  Sex: Female
  Weight: 129 kg

DRUGS (9)
  1. XANAX [Suspect]
     Active Substance: ALPRAZOLAM
     Dosage: 2 DF, 1X/DAY
     Route: 048
     Dates: end: 20170109
  2. OXYNORM [Suspect]
     Active Substance: OXYCODONE HYDROCHLORIDE
     Indication: PAIN
     Dosage: 1 DF, EVERY 4 HOURS
     Route: 048
     Dates: end: 20170109
  3. CITALOPRAM HYDROBROMIDE. [Concomitant]
     Active Substance: CITALOPRAM HYDROBROMIDE
     Dosage: UNK
  4. PREVISCAN /00789001/ [Concomitant]
     Active Substance: FLUINDIONE
     Dosage: UNK
  5. VICTAN [Suspect]
     Active Substance: ETHYL LOFLAZEPATE
     Dosage: 1 DF, 1X/DAY
     Route: 048
     Dates: end: 20170109
  6. OXYCONTIN [Suspect]
     Active Substance: OXYCODONE HYDROCHLORIDE
     Indication: PAIN
     Dosage: 2 DF, 1X/DAY
     Route: 048
     Dates: end: 20170109
  7. PANTOPRAZOLE [Concomitant]
     Active Substance: PANTOPRAZOLE
     Dosage: UNK
  8. LEVOTHYROX [Concomitant]
     Active Substance: LEVOTHYROXINE
     Dosage: UNK
  9. SPASFON /00765801/ [Concomitant]
     Active Substance: PHLOROGLUCINOL\1,3,5-TRIMETHOXYBENZENE
     Dosage: UNK

REACTIONS (2)
  - Coma [Recovered/Resolved]
  - Hyperhidrosis [Recovered/Resolved]

NARRATIVE: CASE EVENT DATE: 20170109
